FAERS Safety Report 7215100-0 (Version None)
Quarter: 2011Q1

REPORT INFORMATION
  Report Type: 
  Country: None (occurrence: None)
  Receive Date: 20110107
  Receipt Date: 20100824
  Transmission Date: 20110831
  Serious: No
  Sender: FDA-Public Use
  Company Number: A0877483A

PATIENT
  Age: 62 Year
  Sex: Female

DRUGS (6)
  1. HYDROCHLOROTHIAZIDE [Concomitant]
  2. LOVAZA [Suspect]
     Route: 048
     Dates: start: 20100601, end: 20100701
  3. METFORMIN [Concomitant]
  4. DYAZIDE [Concomitant]
  5. SYNTHROID [Concomitant]
  6. ALEVE [Concomitant]

REACTIONS (7)
  - PRURITUS [None]
  - BACK PAIN [None]
  - BLOOD PRESSURE INCREASED [None]
  - FLUID RETENTION [None]
  - LOW DENSITY LIPOPROTEIN INCREASED [None]
  - NECK PAIN [None]
  - WEIGHT INCREASED [None]
